FAERS Safety Report 25145003 (Version 1)
Quarter: 2025Q1

REPORT INFORMATION
  Report Type: Spontaneous
  Country: US (occurrence: None)
  Receive Date: 20250331
  Receipt Date: 20250331
  Transmission Date: 20250409
  Serious: Yes (Life-Threatening, Hospitalization)
  Sender: FDA-CTU
  Company Number: None

PATIENT
  Age: 17 Year
  Sex: Female
  Weight: 48.6 kg

DRUGS (1)
  1. AMITRIPTYLINE [Suspect]
     Active Substance: AMITRIPTYLINE
     Indication: Migraine
     Dosage: OTHER QUANTITY : 1 TABLET(S);?FREQUENCY : DAILY;?
     Route: 048
     Dates: end: 20190215

REACTIONS (11)
  - Suicidal ideation [None]
  - Intentional self-injury [None]
  - Irritability [None]
  - Anger [None]
  - Emotional disorder [None]
  - Tachycardia [None]
  - Heart rate irregular [None]
  - Dizziness [None]
  - Loss of consciousness [None]
  - Delirium [None]
  - Overdose [None]

NARRATIVE: CASE EVENT DATE: 20190218
